FAERS Safety Report 6674211-9 (Version None)
Quarter: 2010Q2

REPORT INFORMATION
  Report Type: 
  Country: None (occurrence: None)
  Receive Date: 20100409
  Receipt Date: 20100331
  Transmission Date: 20101027
  Serious: Yes (Hospitalization)
  Sender: FDA-Public Use
  Company Number: CN-JNJFOC-20091006328

PATIENT
  Sex: Male
  Weight: 66 kg

DRUGS (4)
  1. BLINDED; INFLIXIMAB, RECOMBINANT [Suspect]
     Indication: PSORIASIS
     Route: 042
     Dates: start: 20090421, end: 20090922
  2. BLINDED; INFLIXIMAB, RECOMBINANT [Suspect]
     Route: 042
     Dates: start: 20090421, end: 20090922
  3. PLACEBO [Suspect]
     Indication: PSORIASIS
     Route: 042
  4. PLACEBO [Suspect]
     Route: 042

REACTIONS (2)
  - LYMPHADENITIS [None]
  - PULMONARY TUBERCULOSIS [None]
